FAERS Safety Report 15637114 (Version 1)
Quarter: 2018Q4

REPORT INFORMATION
  Report Type: Other
  Country: US (occurrence: NL)
  Receive Date: 20181120
  Receipt Date: 20181120
  Transmission Date: 20190205
  Serious: Yes (Other)
  Sender: FDA-Public Use
  Company Number: NL-BRECKENRIDGE PHARMACEUTICAL, INC.-2059054

PATIENT
  Age: 1 Day
  Sex: Male

DRUGS (1)
  1. METHYLERGONOVINE [Suspect]
     Active Substance: METHYLERGONOVINE
     Route: 030

REACTIONS (2)
  - Hyponatraemia [Recovered/Resolved]
  - Hyperlactacidaemia [Recovered/Resolved]
